FAERS Safety Report 8764736 (Version 2)
Quarter: 2013Q4

REPORT INFORMATION
  Report Type: Spontaneous
  Country: GB (occurrence: GB)
  Receive Date: 20120831
  Receipt Date: 20131031
  Transmission Date: 20140711
  Serious: Yes (Other)
  Sender: FDA-Public Use
  Company Number: GB-MERCK-1208GBR011827

PATIENT
  Age: 55 Year
  Sex: Male

DRUGS (8)
  1. DEXAMETHASONE TABLETS BP 2.0MG [Suspect]
     Indication: POSTOPERATIVE CARE
     Dosage: 2 MG, TID
     Route: 048
     Dates: start: 20120328
  2. DEXAMETHASONE TABLETS BP 2.0MG [Suspect]
     Dosage: 500 MICROGRAM, UNK
     Route: 048
  3. CANDESARTAN [Concomitant]
     Dosage: 2 MG, QD
  4. LAMICTAL [Concomitant]
     Dosage: 200 MG, BID
  5. LANSOPRAZOLE [Concomitant]
     Dosage: 30 MG, QD
  6. LEVETIRACETAM [Concomitant]
     Dosage: 500 MG, UNK
  7. TOPIRAMATE [Concomitant]
     Dosage: 25 MG, QD
  8. ZINC SULFATE [Concomitant]
     Dosage: 1205 MG, ONCE

REACTIONS (4)
  - Confusional state [Recovered/Resolved]
  - Hallucination [Recovered/Resolved]
  - Hemiparesis [Recovered/Resolved]
  - Withdrawal syndrome [Recovered/Resolved]
